FAERS Safety Report 7785422-3 (Version None)
Quarter: 2011Q3

REPORT INFORMATION
  Report Type: 
  Country: None (occurrence: None)
  Receive Date: 20110929
  Receipt Date: 20110920
  Transmission Date: 20111222
  Serious: No
  Sender: FDA-Public Use
  Company Number: GB-UCBSA-040557

PATIENT

DRUGS (2)
  1. VIMPAT [Suspect]
  2. VIMPAT [Suspect]
     Route: 048

REACTIONS (1)
  - NO ADVERSE EVENT [None]
